FAERS Safety Report 21363007 (Version 5)
Quarter: 2023Q4

REPORT INFORMATION
  Report Type: Report from Study
  Country: CA (occurrence: CA)
  Receive Date: 20220922
  Receipt Date: 20231206
  Transmission Date: 20240110
  Serious: Yes (Hospitalization, Other)
  Sender: FDA-Public Use
  Company Number: CA-NOVARTISPH-NVSC2021CA291158

PATIENT
  Age: 57 Year
  Sex: Male

DRUGS (4)
  1. SANDOSTATIN LAR DEPOT [Suspect]
     Active Substance: OCTREOTIDE ACETATE
     Indication: Carcinoid tumour
     Dosage: 30 MG, Q4W
     Route: 030
     Dates: start: 20210721
  2. SANDOSTATIN LAR DEPOT [Suspect]
     Active Substance: OCTREOTIDE ACETATE
  3. SANDOSTATIN LAR DEPOT [Suspect]
     Active Substance: OCTREOTIDE ACETATE
  4. RAMIPRIL [Concomitant]
     Active Substance: RAMIPRIL
     Indication: Product used for unknown indication
     Dosage: UNK
     Route: 048
     Dates: start: 20220307

REACTIONS (6)
  - Thrombosis [Unknown]
  - Tendon rupture [Unknown]
  - Myocardial infarction [Unknown]
  - Cardiac stress test abnormal [Unknown]
  - Blood pressure increased [Unknown]
  - Injection site haemorrhage [Unknown]

NARRATIVE: CASE EVENT DATE: 20211101
